FAERS Safety Report 19944435 (Version 1)
Quarter: 2021Q4

REPORT INFORMATION
  Report Type: Spontaneous
  Country: US (occurrence: US)
  Receive Date: 20211010
  Receipt Date: 20211010
  Transmission Date: 20220303
  Serious: No
  Sender: FDA-Public Use
  Company Number: None

PATIENT
  Age: 45 Year
  Sex: Female
  Weight: 90 kg

DRUGS (1)
  1. EOS THE GUARDIAN 100% NATURAL SPF 30 WATERMELON SUN PROTECT SUNSCREEN [Suspect]
     Active Substance: ZINC OXIDE
     Indication: Lip dry
     Dosage: ?          QUANTITY:1 LIP BALM;
     Route: 061
     Dates: start: 20210825, end: 20210917

REACTIONS (4)
  - Lip dry [None]
  - Chapped lips [None]
  - Lip exfoliation [None]
  - Lip pain [None]

NARRATIVE: CASE EVENT DATE: 20210916
